APPROVED DRUG PRODUCT: DEXAMETHASONE SODIUM PHOSPHATE PRESERVATIVE FREE
Active Ingredient: DEXAMETHASONE SODIUM PHOSPHATE
Strength: EQ 10MG PHOSPHATE/ML
Dosage Form/Route: INJECTABLE;INJECTION
Application: A208690 | Product #001 | TE Code: AP
Applicant: AMNEAL EU LTD
Approved: Aug 22, 2018 | RLD: No | RS: No | Type: RX